FAERS Safety Report 6887761-7 (Version None)
Quarter: 2010Q3

REPORT INFORMATION
  Report Type: 
  Country: None (occurrence: None)
  Receive Date: 20100730
  Receipt Date: 20100721
  Transmission Date: 20110219
  Serious: Yes (Hospitalization, Other)
  Sender: FDA-Public Use
  Company Number: GB-JNJFOC-20100704110

PATIENT
  Age: 24 Year
  Sex: Female

DRUGS (4)
  1. TRAMADOL HCL [Suspect]
     Indication: URINARY TRACT INFECTION
     Route: 065
  2. PARACETAMOL [Suspect]
     Indication: URINARY TRACT INFECTION
     Route: 065
  3. TRIMETHOPRIM [Suspect]
     Indication: URINARY TRACT INFECTION
     Route: 065
  4. DICLOFENAC SODIUM [Suspect]
     Indication: URINARY TRACT INFECTION
     Route: 065

REACTIONS (19)
  - ABDOMINAL PAIN [None]
  - AREFLEXIA [None]
  - BLOOD SODIUM DECREASED [None]
  - CHROMATURIA [None]
  - CONDITION AGGRAVATED [None]
  - CONFUSIONAL STATE [None]
  - CONVULSION [None]
  - DEHYDRATION [None]
  - DIZZINESS [None]
  - HYPOTENSION [None]
  - INAPPROPRIATE ANTIDIURETIC HORMONE SECRETION [None]
  - LIBIDO DISORDER [None]
  - LOSS OF CONSCIOUSNESS [None]
  - NAUSEA [None]
  - PORPHYRIA [None]
  - TACHYCARDIA [None]
  - URINARY INCONTINENCE [None]
  - VOMITING [None]
  - WEIGHT DECREASED [None]
